FAERS Safety Report 10143883 (Version 2)
Quarter: 2014Q2

REPORT INFORMATION
  Report Type: Spontaneous
  Country: JP (occurrence: JP)
  Receive Date: 20140430
  Receipt Date: 20140509
  Transmission Date: 20141212
  Serious: Yes (Hospitalization)
  Sender: FDA-Public Use
  Company Number: JP-ASTRAZENECA-2014SE28392

PATIENT
  Age: 82 Year
  Sex: Male

DRUGS (9)
  1. CRESTOR [Suspect]
     Route: 048
  2. URIEF [Concomitant]
  3. DOGMATYL [Concomitant]
  4. ALFAROL [Concomitant]
  5. SALOBEL [Concomitant]
  6. UBRETID [Concomitant]
  7. BROTIZOLAM [Concomitant]
  8. EURODIN [Concomitant]
  9. PAXIL [Concomitant]

REACTIONS (1)
  - Hepatic cancer [Recovered/Resolved]
